FAERS Safety Report 15576749 (Version 1)
Quarter: 2018Q4

REPORT INFORMATION
  Report Type: Report from Study
  Country: TR (occurrence: TR)
  Receive Date: 20181101
  Receipt Date: 20181101
  Transmission Date: 20190205
  Serious: Yes (Other)
  Sender: FDA-Public Use
  Company Number: TR-GILEAD-2018-0370761

PATIENT
  Age: 46 Year
  Sex: Male

DRUGS (2)
  1. EMTRICITABINE/TENOFOVIR DISOPROXIL FUMARATE [Suspect]
     Active Substance: EMTRICITABINE\TENOFOVIR DISOPROXIL FUMARATE
     Indication: HIV INFECTION
     Dosage: UNK
     Route: 065
  2. STOCRIN [Concomitant]
     Active Substance: EFAVIRENZ

REACTIONS (2)
  - Osteoporosis [Unknown]
  - Lipids increased [Unknown]
